FAERS Safety Report 10982754 (Version 1)
Quarter: 2015Q2

REPORT INFORMATION
  Report Type: Spontaneous
  Country: US (occurrence: None)
  Receive Date: 20150402
  Receipt Date: 20150402
  Transmission Date: 20150821
  Serious: Yes (Hospitalization)
  Sender: FDA-Public Use
  Company Number: None

PATIENT
  Age: 93 Year
  Sex: Male
  Weight: 59.8 kg

DRUGS (2)
  1. OXYBUTYNIN [Suspect]
     Active Substance: OXYBUTYNIN
     Indication: POLLAKIURIA
     Route: 048
     Dates: start: 20150122, end: 20150305
  2. HYDROCHLOROTHIAZIDE. [Suspect]
     Active Substance: HYDROCHLOROTHIAZIDE
     Route: 048
     Dates: start: 20120322, end: 20150305

REACTIONS (10)
  - Vomiting [None]
  - Hypovolaemia [None]
  - Diarrhoea [None]
  - Discomfort [None]
  - Fall [None]
  - Head injury [None]
  - Nausea [None]
  - Hyponatraemia [None]
  - Joint injury [None]
  - Syncope [None]

NARRATIVE: CASE EVENT DATE: 20150226
